FAERS Safety Report 6509648-1 (Version None)
Quarter: 2009Q4

REPORT INFORMATION
  Report Type: 
  Country: None (occurrence: None)
  Receive Date: 20091222
  Receipt Date: 20091216
  Transmission Date: 20100525
  Serious: Yes (Death)
  Sender: FDA-Public Use
  Company Number: FR-WYE-H12715509

PATIENT
  Age: 74 Year
  Sex: Female

DRUGS (6)
  1. INIPOMP [Suspect]
     Dosage: UNKNOWN
     Route: 048
  2. FUCIDINE CAP [Suspect]
     Dosage: UNKNOWN
     Route: 042
  3. PREVISCAN [Suspect]
     Dosage: UNKNOWN
     Route: 048
  4. FOSFOMYCIN [Suspect]
     Dosage: UNKNOWN
     Route: 042
  5. LYRICA [Suspect]
     Dosage: UNKNOWN
  6. STABLON [Suspect]
     Dosage: UNKNOWN
     Route: 048

REACTIONS (2)
  - AGRANULOCYTOSIS [None]
  - SEPTIC SHOCK [None]
